FAERS Safety Report 7163418-2 (Version None)
Quarter: 2010Q4

REPORT INFORMATION
  Report Type: 
  Country: None (occurrence: None)
  Receive Date: 20101215
  Receipt Date: 20100414
  Transmission Date: 20110411
  Serious: Yes (Other)
  Sender: FDA-Public Use
  Company Number: US-PFIZER INC-2010047956

PATIENT
  Age: 83 Year
  Sex: Female
  Weight: 61.224 kg

DRUGS (4)
  1. LYRICA [Suspect]
     Indication: NERVE INJURY
     Dosage: 25 MG, 3X/DAY
     Route: 048
     Dates: start: 20100304, end: 20100401
  2. LYRICA [Suspect]
     Indication: OSTEOPOROSIS
     Dosage: 50MG IN THE MORNING AND 75MG IN THE NIGHT
     Route: 048
     Dates: start: 20100401
  3. LYRICA [Suspect]
     Indication: OSTEOARTHRITIS
  4. SIMVASTATIN [Concomitant]
     Indication: HYPERCHOLESTEROLAEMIA
     Dosage: UNK

REACTIONS (5)
  - NERVOUS SYSTEM DISORDER [None]
  - NEURALGIA [None]
  - PAIN [None]
  - RESTLESSNESS [None]
  - URINARY INCONTINENCE [None]
